FAERS Safety Report 9611508 (Version 4)
Quarter: 2014Q1

REPORT INFORMATION
  Report Type: Spontaneous
  Country: US (occurrence: US)
  Receive Date: 20131010
  Receipt Date: 20140317
  Transmission Date: 20141002
  Serious: Yes (Death)
  Sender: FDA-Public Use
  Company Number: US-BRISTOL-MYERS SQUIBB COMPANY-19513654

PATIENT
  Age: 49 Year
  Sex: Male

DRUGS (15)
  1. BYETTA [Suspect]
     Indication: TYPE 2 DIABETES MELLITUS
     Dates: start: 2010, end: 201106
  2. BAYER ASPIRIN [Concomitant]
     Dosage: TABS
     Route: 048
     Dates: start: 20101012
  3. ENALAPRIL MALEATE [Concomitant]
     Route: 048
     Dates: start: 20101012
  4. METOPROLOL SUCCINATE [Concomitant]
     Dosage: TABS?100MG TABLET ER 24HR 1 ORAL TWO TIMES DAILY
     Route: 048
     Dates: start: 20101012
  5. NORVASC [Concomitant]
     Route: 048
     Dates: start: 20101012
  6. OXYCODONE HCL + ACETAMINOPHEN [Concomitant]
     Dosage: 5-325MG TABLET I ORAL AS NEEDED?1-2 EVERY 4-6 HOURS
     Route: 048
     Dates: start: 20101012
  7. SIMVASTATIN [Concomitant]
     Route: 048
     Dates: start: 20101012
  8. SPIRONOLACTONE [Concomitant]
     Route: 048
     Dates: start: 20101012
  9. NICOTINE [Concomitant]
  10. KCL RETARD [Concomitant]
  11. LISINOPRIL [Concomitant]
  12. HYDROCHLOROTHIAZIDE [Concomitant]
  13. COREG [Concomitant]
  14. LANTUS [Concomitant]
  15. LEVITRA [Concomitant]

REACTIONS (1)
  - Adenocarcinoma pancreas [Fatal]
